FAERS Safety Report 6831956-5 (Version None)
Quarter: 2010Q3

REPORT INFORMATION
  Report Type: 
  Country: None (occurrence: None)
  Receive Date: 20100712
  Receipt Date: 20100701
  Transmission Date: 20110219
  Serious: Yes (Hospitalization, Disabling, Other)
  Sender: FDA-Public Use
  Company Number: ES-ROCHE-705969

PATIENT
  Sex: Male

DRUGS (2)
  1. ROACTEMRA [Suspect]
     Indication: TUBERCULOSIS
     Route: 042
     Dates: start: 20090412
  2. RIFAMATE [Concomitant]
     Dates: start: 20090102, end: 20090109

REACTIONS (2)
  - CYTOMEGALOVIRUS INFECTION [None]
  - RENAL FAILURE [None]
